FAERS Safety Report 9977318 (Version 1)
Quarter: 2014Q1

REPORT INFORMATION
  Report Type: Report from Study
  Country: US (occurrence: US)
  Receive Date: 20140306
  Receipt Date: 20140306
  Transmission Date: 20141002
  Serious: No
  Sender: FDA-Public Use
  Company Number: US-ABBVIE-13P-163-1168613-00

PATIENT
  Sex: Female
  Weight: 108.96 kg

DRUGS (4)
  1. HUMIRA [Suspect]
     Indication: CROHN^S DISEASE
     Dates: start: 201006, end: 201006
  2. HUMIRA [Suspect]
     Dates: start: 201006, end: 201006
  3. HUMIRA [Suspect]
     Dates: start: 201307
  4. ASACOL HD [Concomitant]
     Indication: CROHN^S DISEASE

REACTIONS (3)
  - Metrorrhagia [Recovered/Resolved]
  - Abdominal pain [Recovered/Resolved]
  - Diarrhoea [Recovered/Resolved]
